FAERS Safety Report 7642996-0 (Version None)
Quarter: 2011Q3

REPORT INFORMATION
  Report Type: 
  Country: None (occurrence: None)
  Receive Date: 20110728
  Receipt Date: 20110720
  Transmission Date: 20111222
  Serious: Yes (Hospitalization)
  Sender: FDA-Public Use
  Company Number: US-US-EMD SERONO, INC.-231267J10USA

PATIENT
  Sex: Male
  Weight: 122 kg

DRUGS (3)
  1. REBIF [Suspect]
  2. ULTRAM [Concomitant]
     Indication: PAIN
  3. REBIF [Suspect]
     Indication: MULTIPLE SCLEROSIS
     Dates: start: 20070904

REACTIONS (11)
  - DIPLOPIA [None]
  - DRUG ADMINISTRATION ERROR [None]
  - INTERVERTEBRAL DISC DEGENERATION [None]
  - INFLUENZA LIKE ILLNESS [None]
  - NAUSEA [None]
  - DYSPEPSIA [None]
  - PARAESTHESIA [None]
  - CENTRAL NERVOUS SYSTEM LESION [None]
  - HYPOAESTHESIA [None]
  - GAIT DISTURBANCE [None]
  - HYPERHIDROSIS [None]
